FAERS Safety Report 6994681-6 (Version None)
Quarter: 2010Q3

REPORT INFORMATION
  Report Type: 
  Country: None (occurrence: None)
  Receive Date: 20100915
  Receipt Date: 20100827
  Transmission Date: 20110219
  Serious: Yes (Death, Hospitalization)
  Sender: FDA-Public Use
  Company Number: 2009AC000514

PATIENT
  Age: 83 Year
  Sex: Female
  Weight: 48.9885 kg

DRUGS (22)
  1. DIGOXIN [Suspect]
     Indication: PRODUCT USED FOR UNKNOWN INDICATION
     Dosage: 0.125 MG; QD; PO
     Route: 048
     Dates: start: 20071012, end: 20080228
  2. AMLODIPINE [Concomitant]
  3. ASPIRIN [Concomitant]
  4. CARVEDILOL [Concomitant]
  5. M.V.I. [Concomitant]
  6. TRAMADOL [Concomitant]
  7. ACETAMINOPHEN [Concomitant]
  8. AGRYLIN [Concomitant]
  9. SILDENAFIL CITRATE [Concomitant]
  10. ALDACTONE [Concomitant]
  11. FERROUS SULFATE [Concomitant]
  12. OXYGEN [Concomitant]
  13. LANSOPRAZOLE [Concomitant]
  14. PRAVASTATIN [Concomitant]
  15. LOVENOX [Concomitant]
  16. FUROSEMIDE [Concomitant]
  17. ALBUTEROL [Concomitant]
  18. PROTONIX [Concomitant]
  19. HYDREA [Concomitant]
  20. ARANESP [Concomitant]
  21. DIGIBIND [Concomitant]
  22. ATROPINE [Concomitant]

REACTIONS (22)
  - ABASIA [None]
  - AORTIC STENOSIS [None]
  - ASCITES [None]
  - ASTHENIA [None]
  - BRADYCARDIA [None]
  - CARDIAC MURMUR [None]
  - CARDIOMEGALY [None]
  - COR PULMONALE [None]
  - DILATATION VENTRICULAR [None]
  - ECONOMIC PROBLEM [None]
  - INJURY [None]
  - IRON DEFICIENCY ANAEMIA [None]
  - MYOCARDIAL ISCHAEMIA [None]
  - NAUSEA [None]
  - PLEURAL EFFUSION [None]
  - PULMONARY HYPERTENSION [None]
  - PULMONARY OEDEMA [None]
  - RENAL FAILURE ACUTE [None]
  - SPLENOMEGALY [None]
  - THERAPEUTIC AGENT TOXICITY [None]
  - THROMBOCYTOSIS [None]
  - VOMITING [None]
